FAERS Safety Report 9749489 (Version 2)
Quarter: 2014Q2

REPORT INFORMATION
  Report Type: Spontaneous
  Country: US (occurrence: US)
  Receive Date: 20131212
  Receipt Date: 20140508
  Transmission Date: 20141212
  Serious: Yes (Hospitalization, Other)
  Sender: FDA-Public Use
  Company Number: US-PFIZER INC-2013352752

PATIENT
  Age: 73 Year
  Sex: Male
  Weight: 68.48 kg

DRUGS (8)
  1. NORVASC [Suspect]
     Dosage: 5 MG, 1X/DAY
     Route: 048
     Dates: start: 2008
  2. LIPITOR [Suspect]
     Indication: BLOOD CHOLESTEROL INCREASED
     Dosage: 10 MG, 1X/DAY
     Dates: start: 1997
  3. LIPITOR [Suspect]
     Dosage: 20 MG, 1X/DAY
  4. LIPITOR [Suspect]
     Dosage: 40 MG, 1X/DAY
  5. LIPITOR [Suspect]
     Dosage: 80 MG, 1X/DAY
  6. CELEBREX [Suspect]
     Dosage: 100 MG, 1X/DAY
     Dates: start: 2011
  7. NITROSTAT [Suspect]
     Dosage: 0.4 MG, AS NEEDED
     Route: 060
     Dates: start: 1995
  8. ASPIRIN [Concomitant]
     Dosage: 81 MG, UNK

REACTIONS (2)
  - Gallbladder cancer [Unknown]
  - Liver disorder [Unknown]
